FAERS Safety Report 5380163-4 (Version None)
Quarter: 2007Q3

REPORT INFORMATION
  Report Type: 
  Country: None (occurrence: None)
  Receive Date: 20070706
  Receipt Date: 20070622
  Transmission Date: 20080115
  Serious: No
  Sender: FDA-Public Use
  Company Number: A0650259A

PATIENT
  Age: 67 Year
  Sex: Female
  Weight: 54.5 kg

DRUGS (4)
  1. TYKERB [Suspect]
     Indication: BREAST CANCER
     Dosage: 5TAB PER DAY
     Route: 048
     Dates: start: 20070401, end: 20070401
  2. ATENOLOL [Concomitant]
     Dosage: 1TAB PER DAY
  3. WARFARIN SODIUM [Concomitant]
     Dates: end: 20070607
  4. XELODA [Concomitant]
     Dosage: 500MG TWICE PER DAY
     Route: 048
     Dates: start: 20070401

REACTIONS (2)
  - DIARRHOEA [None]
  - RASH PRURITIC [None]
